FAERS Safety Report 12929525 (Version 1)
Quarter: 2016Q4

REPORT INFORMATION
  Report Type: Spontaneous
  Country: JP (occurrence: JP)
  Receive Date: 20161110
  Receipt Date: 20161110
  Transmission Date: 20170207
  Serious: Yes (Life-Threatening, Hospitalization, Other)
  Sender: FDA-Public Use
  Company Number: JP-GLAXOSMITHKLINE-B0878324A

PATIENT
  Age: 72 Year
  Sex: Female

DRUGS (12)
  1. DIOVAN [Concomitant]
     Active Substance: VALSARTAN
     Indication: HYPERTENSION
     Dosage: 80 MG, QD
     Route: 048
     Dates: end: 20130211
  2. ISENTRESS [Concomitant]
     Active Substance: RALTEGRAVIR POTASSIUM
     Indication: HIV INFECTION
     Dosage: 400 MG, BID
     Route: 048
     Dates: start: 20110303, end: 20130211
  3. BAYASPIRIN [Concomitant]
     Active Substance: ASPIRIN
     Indication: PROPHYLAXIS
     Dosage: 100 MG, QD
     Route: 048
     Dates: end: 20130211
  4. ZOPICLONE [Concomitant]
     Active Substance: ZOPICLONE
     Indication: INSOMNIA
     Dosage: 7.5 MG, PRN
     Route: 048
     Dates: end: 20130211
  5. ABACAVIR SULPHATE [Suspect]
     Active Substance: ABACAVIR
     Indication: HIV INFECTION
     Dosage: 300 MG, BID
     Route: 048
     Dates: start: 20110303, end: 20130211
  6. LAMIVUDINE. [Suspect]
     Active Substance: LAMIVUDINE
     Indication: HIV INFECTION
     Dosage: 150 MG, BID
     Route: 048
     Dates: start: 20110303, end: 20130211
  7. FLUTORIA [Concomitant]
     Indication: HYPERTENSION
     Dosage: 2 MG, QD
     Route: 048
     Dates: end: 20130211
  8. PLETAAL OD [Concomitant]
     Active Substance: CILOSTAZOL
     Indication: PROPHYLAXIS
     Dosage: 100 MG, BID
     Route: 048
     Dates: end: 20130211
  9. LOXOPROFEN [Concomitant]
     Active Substance: LOXOPROFEN
     Indication: PAIN
     Dosage: 60 MG, PRN
     Route: 048
     Dates: start: 20110406, end: 20130211
  10. TEPRENONE [Concomitant]
     Active Substance: TEPRENONE
     Indication: PAIN
     Dosage: 50 MG, PRN
     Route: 048
     Dates: start: 20110406, end: 20130211
  11. VICTOZA [Concomitant]
     Active Substance: LIRAGLUTIDE
     Indication: DIABETES MELLITUS
     Dosage: 0.9 MG, QD
     Route: 058
     Dates: start: 20120307, end: 20130211
  12. AMLODIPINE [Concomitant]
     Active Substance: AMLODIPINE BESYLATE
     Indication: HYPERTENSION
     Dosage: 10 MG, BID
     Route: 048
     Dates: end: 20130211

REACTIONS (10)
  - Tachypnoea [Unknown]
  - Short-bowel syndrome [Unknown]
  - Gastrointestinal necrosis [Unknown]
  - Cardiac arrest [Recovered/Resolved]
  - Tachycardia [Unknown]
  - Vomiting [Unknown]
  - Lactic acidosis [Recovering/Resolving]
  - Intestinal ischaemia [Unknown]
  - Abdominal pain [Unknown]
  - Depressed level of consciousness [Recovering/Resolving]

NARRATIVE: CASE EVENT DATE: 201302
